FAERS Safety Report 4842978-8 (Version None)
Quarter: 2005Q4

REPORT INFORMATION
  Report Type: 
  Country: None (occurrence: None)
  Receive Date: 20051201
  Receipt Date: 20051123
  Transmission Date: 20060501
  Serious: Yes (Death)
  Sender: FDA-Public Use
  Company Number: AU-ROCHE-425916

PATIENT
  Age: 59 Year
  Sex: Female
  Weight: 70 kg

DRUGS (5)
  1. VALIUM [Suspect]
     Indication: DRUG USE FOR UNKNOWN INDICATION
     Dosage: FORM REPORTED AS ORAL APPLICATION. LONG TERM USE.
     Route: 048
  2. ZYPREXA [Suspect]
     Indication: DRUG USE FOR UNKNOWN INDICATION
     Dosage: LONG TERM USE.
     Route: 048
  3. BENZTROPINE MESYLATE [Suspect]
     Indication: DRUG USE FOR UNKNOWN INDICATION
     Dosage: LONG TERM USE.
     Route: 065
  4. LOSEC [Suspect]
     Indication: DRUG USE FOR UNKNOWN INDICATION
     Dosage: FORM REPORTED AS ORAL APPLICATION. LONG TERM USE.
     Route: 048
  5. MAGNESIUM NOS [Suspect]
     Indication: DRUG USE FOR UNKNOWN INDICATION
     Dosage: LONG TERM USE.
     Route: 065

REACTIONS (2)
  - DEATH [None]
  - SUDDEN DEATH [None]
